FAERS Safety Report 25433507 (Version 1)
Quarter: 2025Q2

REPORT INFORMATION
  Report Type: Spontaneous
  Country: BG (occurrence: BG)
  Receive Date: 20250613
  Receipt Date: 20250613
  Transmission Date: 20250716
  Serious: Yes (Other)
  Sender: RANBAXY
  Company Number: BG-SUN PHARMACEUTICAL INDUSTRIES INC-2025R1-511719

PATIENT
  Age: 95 Year
  Sex: Female

DRUGS (6)
  1. ENALAPRIL [Suspect]
     Active Substance: ENALAPRIL
     Indication: Hypertension
     Dosage: 5 MILLIGRAM, BID
     Route: 065
     Dates: start: 2005, end: 2014
  2. LOSARTAN [Suspect]
     Active Substance: LOSARTAN
     Indication: Hypertension
     Route: 065
     Dates: start: 2014
  3. BENFOTIAMINE [Concomitant]
     Active Substance: BENFOTIAMINE
     Indication: Polyneuropathy
     Route: 065
  4. PYRIDOXINE HYDROCHLORIDE [Concomitant]
     Active Substance: PYRIDOXINE HYDROCHLORIDE
     Indication: Polyneuropathy
     Route: 065
  5. cinacobalamin [Concomitant]
     Indication: Polyneuropathy
     Dosage: UNK, TID
     Route: 065
  6. PENTOXIFYLLINE [Concomitant]
     Active Substance: PENTOXIFYLLINE
     Indication: Polyneuropathy
     Route: 065

REACTIONS (1)
  - Neoplasm progression [Unknown]
